FAERS Safety Report 8252776-3 (Version None)
Quarter: 2012Q2

REPORT INFORMATION
  Report Type: 
  Country: None (occurrence: None)
  Receive Date: 20120402
  Receipt Date: 20110412
  Transmission Date: 20120825
  Serious: No
  Sender: FDA-Public Use
  Company Number: US-ABBOTT-11P-163-0804425-00

PATIENT
  Age: 66 Year
  Sex: Male
  Weight: 75.454 kg

DRUGS (9)
  1. NICOTINIC ACID [Concomitant]
     Indication: BLOOD CHOLESTEROL INCREASED
     Dosage: DAILY DOSE:  UNKNOWN
     Route: 065
  2. TESTOSTERONE [Suspect]
     Indication: BLOOD TESTOSTERONE DECREASED
     Dosage: DAILY DOSE:  UNKNOWN, VIA PUMP, ONCE EVERY NIGHT AT BEDTIME.
     Route: 062
     Dates: start: 20110406
  3. SERTRALINE [Concomitant]
     Indication: NEUROTRANSMITTER LEVEL ALTERED
     Dosage: DAILY DOSE:  UNKNOWN
     Route: 065
  4. RAMIPRIL [Concomitant]
     Indication: CARDIOVASCULAR DISORDER
     Dosage: DAILY DOSE:  UNKNOWN
     Route: 065
  5. ALPRAZOLAM [Concomitant]
     Indication: ANXIETY
     Dosage: DAILY DOSE:  UNKNOWN
     Route: 065
  6. NADOLOL [Concomitant]
     Indication: MITRAL VALVE PROLAPSE
     Dosage: DAILY DOSE:  UNKNOWN
     Route: 065
  7. SIMVASTATIN [Concomitant]
     Indication: BLOOD CHOLESTEROL INCREASED
     Dosage: DAILY DOSE:  UNKNOWN
     Route: 065
  8. BUPROPION HYDROCHLORIDE [Concomitant]
     Indication: NEUROTRANSMITTER LEVEL ALTERED
     Dosage: DAILY DOSE:  UNKNOWN
     Route: 065
     Dates: start: 19900101
  9. CLONAZEPAM [Concomitant]
     Indication: ANXIETY
     Dosage: DAILY DOSE:  UNKNOWN
     Route: 065

REACTIONS (1)
  - ALOPECIA [None]
